FAERS Safety Report 8475848-7 (Version None)
Quarter: 2012Q2

REPORT INFORMATION
  Report Type: 
  Country: None (occurrence: None)
  Receive Date: 20120628
  Receipt Date: 20120620
  Transmission Date: 20120825
  Serious: Yes (Hospitalization, Other)
  Sender: FDA-Public Use
  Company Number: FR-ABBOTT-12P-056-0948187-00

PATIENT
  Sex: Female

DRUGS (22)
  1. ACETAMINOPHEN [Suspect]
     Dates: start: 20110201, end: 20110201
  2. SUPRANE [Suspect]
     Indication: ANAESTHESIA
     Dates: start: 20110101, end: 20110101
  3. DIPRIVAN [Suspect]
     Indication: ANAESTHESIA
     Route: 042
     Dates: start: 20111104, end: 20111104
  4. SUFENTANIL CITRATE [Suspect]
     Route: 042
     Dates: start: 20110201, end: 20110201
  5. SEVOFLURANE [Suspect]
     Route: 055
     Dates: start: 20110101, end: 20110101
  6. ACETAMINOPHEN [Suspect]
     Dates: start: 20110901, end: 20110901
  7. DIPRIVAN [Suspect]
     Route: 042
     Dates: start: 20110901, end: 20110901
  8. SEVOFLURANE [Suspect]
     Indication: ANAESTHESIA
     Route: 055
     Dates: start: 20110101, end: 20110101
  9. SUPRANE [Suspect]
     Dates: start: 20100101, end: 20100101
  10. DIPRIVAN [Suspect]
     Route: 042
     Dates: start: 20071001, end: 20071001
  11. ACETAMINOPHEN [Suspect]
     Indication: ANALGESIC THERAPY
     Dates: start: 20111104, end: 20111104
  12. DIPRIVAN [Suspect]
     Route: 042
     Dates: start: 20110201, end: 20110201
  13. KETOPROFEN [Suspect]
     Indication: ANALGESIC THERAPY
     Dosage: INFUSION
     Dates: start: 20110901, end: 20110901
  14. SEVOFLURANE [Suspect]
     Route: 055
     Dates: start: 20050404, end: 20050404
  15. ACETAMINOPHEN [Suspect]
     Dates: start: 20071001, end: 20071001
  16. SUFENTANIL CITRATE [Suspect]
     Route: 042
     Dates: start: 20110901, end: 20110901
  17. SUFENTANIL CITRATE [Suspect]
     Route: 042
     Dates: start: 20071001, end: 20071001
  18. KETOPROFEN [Suspect]
     Dates: start: 20110201, end: 20110201
  19. ACETAMINOPHEN [Suspect]
     Dates: start: 20050401, end: 20050401
  20. DIPRIVAN [Suspect]
     Route: 042
     Dates: start: 20050401, end: 20050401
  21. SUFENTANIL CITRATE [Suspect]
     Route: 042
     Dates: start: 20050404, end: 20050404
  22. SUFENTANIL CITRATE [Suspect]
     Indication: ANAESTHESIA
     Route: 042
     Dates: start: 20111104, end: 20111104

REACTIONS (2)
  - HEPATITIS [None]
  - TRANSAMINASES INCREASED [None]
